FAERS Safety Report 17418456 (Version 1)
Quarter: 2020Q1

REPORT INFORMATION
  Report Type: Spontaneous
  Country: US (occurrence: US)
  Receive Date: 20200214
  Receipt Date: 20200214
  Transmission Date: 20200409
  Serious: Yes (Hospitalization)
  Sender: FDA-Public Use
  Company Number: US-UNITED THERAPEUTICS-UNT-2020-002002

PATIENT
  Age: 41 Year
  Sex: Female

DRUGS (1)
  1. REMODULIN [Suspect]
     Active Substance: TREPROSTINIL
     Indication: PULMONARY ARTERIAL HYPERTENSION
     Dosage: 0.0593 ?G/KG, CONTINUING
     Route: 058
     Dates: start: 20190320

REACTIONS (3)
  - Amphetamines positive [Unknown]
  - Ascites [Unknown]
  - Fluid retention [Unknown]

NARRATIVE: CASE EVENT DATE: 20200201
